FAERS Safety Report 21992324 (Version 1)
Quarter: 2023Q1

REPORT INFORMATION
  Report Type: Spontaneous
  Country: US (occurrence: US)
  Receive Date: 20230215
  Receipt Date: 20230215
  Transmission Date: 20230418
  Serious: Yes (Other)
  Sender: FDA-Public Use
  Company Number: US-drreddys-LIT/USA/23/0161025

PATIENT
  Age: 14 Year
  Sex: Male

DRUGS (6)
  1. CETIRIZINE [Suspect]
     Active Substance: CETIRIZINE HYDROCHLORIDE
     Indication: Angioedema
  2. MONTELUKAST [Suspect]
     Active Substance: MONTELUKAST SODIUM
     Indication: Angioedema
  3. CEPHALEXIN [Suspect]
     Active Substance: CEPHALEXIN
     Indication: Angioedema
  4. MUPIROCIN [Suspect]
     Active Substance: MUPIROCIN
     Indication: Angioedema
  5. PREDNISONE [Suspect]
     Active Substance: PREDNISONE
     Indication: Angioedema
  6. VASELINE PURE [Concomitant]
     Active Substance: PETROLATUM
     Indication: Product used for unknown indication

REACTIONS (2)
  - Crohn^s disease [Unknown]
  - Drug ineffective for unapproved indication [Unknown]
